FAERS Safety Report 9578158 (Version 1)
Quarter: 2013Q4

REPORT INFORMATION
  Report Type: Spontaneous
  Country: US (occurrence: US)
  Receive Date: 20131001
  Receipt Date: 20131001
  Transmission Date: 20140711
  Serious: No
  Sender: FDA-Public Use
  Company Number: US-AMGEN-USASP2013011894

PATIENT
  Sex: Female
  Weight: 114.29 kg

DRUGS (12)
  1. ENBREL [Suspect]
     Indication: PRODUCT USED FOR UNKNOWN INDICATION
     Dosage: 25 MG, 2 TIMES/WK
  2. CYMBALTA [Concomitant]
     Dosage: 20 MG, UNK
  3. BABY ASPIRIN [Concomitant]
     Dosage: 81 MG, UNK CHW
  4. FISH OIL [Concomitant]
     Dosage: UNK
  5. VITAMIN C                          /00008001/ [Concomitant]
     Dosage: 100 MG, CHW
  6. COQ-10 [Concomitant]
     Dosage: 50 MG, UNK
  7. VITAMIN B-12 [Concomitant]
     Dosage: 50 MUG, LOZ
  8. VITAMIN D                          /00107901/ [Concomitant]
     Dosage: 400 UNIT, UNK
  9. METHOTREXATE [Concomitant]
     Dosage: 2.5 MG, UNK
  10. VIT B12 + FOLIC AC [Concomitant]
     Dosage: UNK
  11. LOSARTAN POTASSIUM [Concomitant]
     Dosage: 100 MG, UNK
  12. BUTRANS                            /00444001/ [Concomitant]
     Dosage: 5 MUG, DIS PER HR

REACTIONS (4)
  - Rash papular [Unknown]
  - Rash pruritic [Unknown]
  - Rash erythematous [Unknown]
  - Skin burning sensation [Unknown]
